FAERS Safety Report 15735922 (Version 1)
Quarter: 2018Q4

REPORT INFORMATION
  Report Type: Report from Study
  Country: IL (occurrence: IL)
  Receive Date: 20181218
  Receipt Date: 20181218
  Transmission Date: 20190205
  Serious: Yes (Other)
  Sender: FDA-Public Use
  Company Number: IL-BAYER-2018-231697

PATIENT
  Age: 92 Year
  Sex: Male

DRUGS (3)
  1. NORVASC [Concomitant]
     Active Substance: AMLODIPINE BESYLATE
     Dosage: 10 MG, BID
  2. ACETYL SALICYLIC ACID [Suspect]
     Active Substance: ASPIRIN
     Dosage: UNK
  3. OCSAAR [LOSARTAN] [Concomitant]
     Dosage: 50 MG, QD

REACTIONS (2)
  - Epistaxis [Recovered/Resolved]
  - Shock haemorrhagic [Recovered/Resolved]
